FAERS Safety Report 7211439-3 (Version None)
Quarter: 2011Q1

REPORT INFORMATION
  Report Type: 
  Country: None (occurrence: None)
  Receive Date: 20110105
  Receipt Date: 20101222
  Transmission Date: 20110831
  Serious: Yes (Other)
  Sender: FDA-Public Use
  Company Number: GB-JNJFOC-20080802424

PATIENT
  Age: 24 Year
  Sex: Female

DRUGS (2)
  1. PARACETAMOL [Suspect]
  2. PARACETAMOL [Suspect]
     Indication: ILL-DEFINED DISORDER
     Dosage: ALLEGED MAXIMUM DOSE 29.5 G

REACTIONS (6)
  - LIVER INJURY [None]
  - INTRA-UTERINE DEATH [None]
  - OVERDOSE [None]
  - DISSEMINATED INTRAVASCULAR COAGULATION [None]
  - MATERNAL DRUGS AFFECTING FOETUS [None]
  - DRUG EXPOSURE DURING PREGNANCY [None]
